FAERS Safety Report 24796103 (Version 1)
Quarter: 2025Q1

REPORT INFORMATION
  Report Type: Spontaneous
  Country: ES (occurrence: ES)
  Receive Date: 20250101
  Receipt Date: 20250101
  Transmission Date: 20250409
  Serious: Yes (Hospitalization)
  Sender: AUROBINDO
  Company Number: ES-AEMPS-1609215

PATIENT
  Age: 71 Year
  Sex: Female
  Weight: 73 kg

DRUGS (1)
  1. MYCOPHENOLIC ACID [Suspect]
     Active Substance: MYCOPHENOLIC ACID
     Indication: Vasculitis
     Dosage: 180 MILLIGRAM, TWO TIMES A DAY
     Route: 048
     Dates: start: 2022

REACTIONS (1)
  - Klebsiella urinary tract infection [Recovered/Resolved]

NARRATIVE: CASE EVENT DATE: 20241025
